FAERS Safety Report 12972077 (Version 1)
Quarter: 2016Q4

REPORT INFORMATION
  Report Type: Spontaneous
  Country: PL (occurrence: PL)
  Receive Date: 20161124
  Receipt Date: 20161124
  Transmission Date: 20170207
  Serious: Yes (Other)
  Sender: FDA-Public Use
  Company Number: PL-ROCHE-1857979

PATIENT
  Age: 44 Year

DRUGS (3)
  1. MYCOPHENOLATE MOFETIL. [Suspect]
     Active Substance: MYCOPHENOLATE MOFETIL
     Indication: LUPUS NEPHRITIS
     Route: 065
  2. PREDNISONE. [Suspect]
     Active Substance: PREDNISONE
     Indication: LUPUS NEPHRITIS
     Route: 065
  3. ARECHIN [Concomitant]
     Active Substance: CHLOROQUINE PHOSPHATE
     Indication: LUPUS NEPHRITIS
     Route: 065

REACTIONS (2)
  - Necrotising herpetic retinopathy [Unknown]
  - Central nervous system lymphoma [Unknown]
